FAERS Safety Report 4561925-X (Version None)
Quarter: 2005Q1

REPORT INFORMATION
  Report Type: 
  Country: None (occurrence: None)
  Receive Date: 20050125
  Receipt Date: 20050114
  Transmission Date: 20050727
  Serious: Yes (Hospitalization, Other)
  Sender: FDA-Public Use
  Company Number: KII-2005-0014659

PATIENT
  Age: 59 Year
  Sex: Female

DRUGS (7)
  1. MORPHINE SULFATE [Suspect]
     Indication: DRUG USE FOR UNKNOWN INDICATION
     Dosage: SEE IMAGE
     Dates: start: 20041223, end: 20041223
  2. CHLOROQUINE (CHLOROQUINE) [Suspect]
     Indication: SYSTEMIC LUPUS ERYTHEMATOSUS
     Dosage: ORAL
     Route: 048
  3. CETACAINE (BENZOCAINE, BUTYL AMINOBENZOATE, CETYLDIMETHYLETHYLAMMONIUM [Suspect]
     Indication: DRUG USE FOR UNKNOWN INDICATION
  4. GASTROINTESTINAL PREPERATION() [Suspect]
     Indication: DRUG USE FOR UNKNOWN INDICATION
  5. ANTIBIOTICS() [Suspect]
     Indication: DRUG USE FOR UNKNOWN INDICATION
  6. METRONIDAZOLE [Concomitant]
     Indication: DRUG USE FOR UNKNOWN INDICATION
  7. PROTON PUMP INHIBITOR () [Suspect]
     Indication: DRUG USE FOR UNKNOWN INDICATION

REACTIONS (11)
  - ANAEMIA [None]
  - BLOOD DISORDER [None]
  - BLOOD METHAEMOGLOBIN PRESENT [None]
  - BLOOD PRESSURE DIASTOLIC DECREASED [None]
  - COMA [None]
  - CYANOSIS [None]
  - GENERAL PHYSICAL HEALTH DETERIORATION [None]
  - LETHARGY [None]
  - OXYGEN SATURATION DECREASED [None]
  - PCO2 DECREASED [None]
  - SKIN DISCOLOURATION [None]
